FAERS Safety Report 8196120-9 (Version None)
Quarter: 2012Q1

REPORT INFORMATION
  Report Type: 
  Country: None (occurrence: None)
  Receive Date: 20120223
  Receipt Date: 20110819
  Transmission Date: 20120608
  Serious: Yes (Hospitalization)
  Sender: FDA-Public Use
  Company Number: WAES 1108USA02502

PATIENT
  Age: 70 Year
  Sex: Male

DRUGS (2)
  1. ZOCOR [Suspect]
     Indication: BLOOD CHOLESTEROL
     Dosage: 40 MG/DAILY/PO
     Route: 048
     Dates: start: 20060101
  2. AMLODIPINE [Concomitant]

REACTIONS (2)
  - DYSPNOEA [None]
  - MYALGIA [None]
